FAERS Safety Report 16345536 (Version 1)
Quarter: 2019Q2

REPORT INFORMATION
  Report Type: Other
  Country: IT (occurrence: IT)
  Receive Date: 20190523
  Receipt Date: 20190523
  Transmission Date: 20190711
  Serious: Yes (Disabling)
  Sender: FDA-Public Use
  Company Number: IT-MACLEODS PHARMACEUTICALS US LTD-MAC2019021342

PATIENT

DRUGS (3)
  1. UNIDROX [Suspect]
     Active Substance: PRULIFLOXACIN
     Indication: PROSTATIC SPECIFIC ANTIGEN INCREASED
     Dosage: 600 MILLIGRAM, QD FILM-COATED TABLET
     Route: 048
     Dates: start: 20190220, end: 20190302
  2. TOPSTER 3MG SUPPOSITORIES 10 SUPPOSITORIES [Concomitant]
     Indication: PRODUCT USED FOR UNKNOWN INDICATION
     Dosage: 10 SUPPOSITORIES OF 3 MILLIGRAM
     Route: 054
     Dates: start: 20190302, end: 20190322
  3. LEVOFLOXACIN. [Suspect]
     Active Substance: LEVOFLOXACIN
     Indication: PROSTATITIS
     Dosage: 1 GRAM, QD, FILM-COATED TABLET
     Route: 048
     Dates: start: 20190218, end: 20190328

REACTIONS (2)
  - Tendon pain [Not Recovered/Not Resolved]
  - Neuralgia [Not Recovered/Not Resolved]

NARRATIVE: CASE EVENT DATE: 20190318
